FAERS Safety Report 5653783-7 (Version None)
Quarter: 2008Q1

REPORT INFORMATION
  Report Type: 
  Country: None (occurrence: None)
  Receive Date: 20080206
  Receipt Date: 20070911
  Transmission Date: 20080703
  Serious: Yes (Other)
  Sender: FDA-Public Use
  Company Number: US200709002372

PATIENT
  Age: 90 Year
  Sex: Female

DRUGS (6)
  1. EVISTA [Suspect]
     Indication: OSTEOPOROSIS
     Dosage: 60 MG, ORAL
     Route: 048
     Dates: start: 20040101, end: 20070901
  2. TETRACYCLINE [Concomitant]
  3. ATENOLOL [Concomitant]
  4. CALCIUM CARBONATE (CALCIUM CARBONATE) TABLET [Concomitant]
  5. OCUVITE (ASCORBIC ACID, RETINOL, TOCOPHEROL) [Concomitant]
  6. PREMARIN [Concomitant]

REACTIONS (4)
  - CHEST PAIN [None]
  - FALL [None]
  - PULMONARY EMBOLISM [None]
  - VARICOSE VEIN [None]
